FAERS Safety Report 11701915 (Version 1)
Quarter: 2015Q4

REPORT INFORMATION
  Report Type: Spontaneous
  Country: TR (occurrence: TR)
  Receive Date: 20151105
  Receipt Date: 20151105
  Transmission Date: 20160304
  Serious: Yes (Hospitalization, Other)
  Sender: FDA-Public Use
  Company Number: TR-BAUSCH-BL-2015-025740

PATIENT
  Age: 28 Year
  Sex: Female

DRUGS (2)
  1. BUPROPION HCL (BUPROPION HYDROCHLORIDE) PROLONGED-RELEASE TABLET [Suspect]
     Active Substance: BUPROPION HYDROCHLORIDE
     Indication: MAJOR DEPRESSION
     Route: 065
  2. BUPROPION HCL (BUPROPION HYDROCHLORIDE) PROLONGED-RELEASE TABLET [Suspect]
     Active Substance: BUPROPION HYDROCHLORIDE
     Dosage: 3750 MG, SINGLE DOSE
     Route: 065

REACTIONS (8)
  - Supraventricular tachycardia [Recovered/Resolved]
  - Depression [Unknown]
  - Toxicity to various agents [Unknown]
  - Intentional overdose [Unknown]
  - Family stress [None]
  - Speech disorder [Unknown]
  - Anxiety [Unknown]
  - Suicide attempt [None]
